FAERS Safety Report 7381185 (Version 1)
Quarter: 2020Q3

REPORT INFORMATION
  Report Type: Report from Study
  Country: FR (occurrence: FR)
  Receive Date: 20100507
  Receipt Date: 20100507
  Transmission Date: 20201105
  Serious: Yes (Hospitalization)
  Sender: FDA-Public Use
  Company Number: FR-JNJFOC-20090703351

PATIENT
  Age: 43 Year
  Sex: Female
  Weight: 76 kg

DRUGS (12)
  1. LOPERAMIDE [Concomitant]
     Active Substance: LOPERAMIDE
     Indication: CROHN^S DISEASE
  2. CALCITE D [Concomitant]
     Indication: OSTEOPOROSIS PROPHYLAXIS
     Route: 048
  3. TOPALGIC (FRANCE) [Concomitant]
     Active Substance: TRAMADOL HYDROCHLORIDE
     Indication: ABDOMINAL PAIN
  4. ZOPICLONE [Concomitant]
     Active Substance: ZOPICLONE
     Route: 048
  5. SOLUPRED (PREDNISOLONE SODIUM METAZOATE) [Concomitant]
     Active Substance: PREDNISOLONE SODIUM METAZOATE
     Indication: CROHN^S DISEASE
     Route: 048
  6. MORPHINE SULFATE. [Concomitant]
     Active Substance: MORPHINE SULFATE
  7. PROPOXYPHENE HYDROCHLORIDE AND ACETAMINOPHEN [Concomitant]
     Active Substance: ACETAMINOPHEN\PROPOXYPHENE HYDROCHLORIDE
  8. ATENOLOL. [Concomitant]
     Active Substance: ATENOLOL
     Indication: ARRHYTHMIA
     Route: 048
  9. DOMPERIDONE [Concomitant]
     Active Substance: DOMPERIDONE
  10. CNTO 1275 [Suspect]
     Active Substance: USTEKINUMAB
     Route: 042
  11. CNTO 1275 [Suspect]
     Active Substance: USTEKINUMAB
     Indication: CROHN^S DISEASE
     Route: 042
  12. INEXIUM [Concomitant]
     Active Substance: ESOMEPRAZOLE

REACTIONS (1)
  - Facial paralysis [Recovered/Resolved]

NARRATIVE: CASE EVENT DATE: 20090709
